FAERS Safety Report 7591535-1 (Version None)
Quarter: 2011Q2

REPORT INFORMATION
  Report Type: 
  Country: None (occurrence: None)
  Receive Date: 20110627
  Receipt Date: 20110613
  Transmission Date: 20111010
  Serious: Yes (Hospitalization, Other)
  Sender: FDA-Public Use
  Company Number: AUR-APL-2011-02911

PATIENT
  Age: 43 Year
  Sex: Male

DRUGS (12)
  1. RAMIPRIL [Suspect]
     Indication: HYPERTENSION
  2. PROPRANOLOL [Suspect]
     Indication: HYPERTENSION
     Dosage: 10 MG (10 MG, 1 IN 1 D), UNKNOWN
  3. DILTIAZEM [Suspect]
     Indication: HYPERTENSION
     Dosage: 60 MG (60 MG, 1 IN 1 D), UNKNOWN
  4. ANTIVIRALS (ANTIVIRALS NOS) [Concomitant]
  5. BENDROFLUAZIDE (BENDROFLUMETHIAZIDE) [Suspect]
     Indication: HYPERTENSION
  6. EMTRICITABINE [Concomitant]
  7. TENOFOVIR DISOPROXIL FUMARATE [Concomitant]
  8. PERINDOPRIL (PERINDOPRIL) [Suspect]
     Indication: HYPERTENSION
     Dates: start: 20080101, end: 20080101
  9. MARAVIROC (MARAVIROC) [Concomitant]
  10. RALTEGRAVIR (RALTEGRAVIR) [Concomitant]
  11. DARUNAVIR HYDRATE [Suspect]
     Indication: HIV INFECTION
     Dosage: 800 MG (800 MG, 1 IN 1 D), UNKNOWN
     Dates: start: 20070101
  12. RITONAVIR [Suspect]
     Indication: HIV INFECTION
     Dosage: 100 MG (100 MG, 1 IN 1 D), UNKNOWN
     Dates: start: 20070101

REACTIONS (8)
  - RENAL IMPAIRMENT [None]
  - MIGRAINE [None]
  - HEADACHE [None]
  - BLOOD CREATININE INCREASED [None]
  - DRUG LEVEL INCREASED [None]
  - HYPOTENSION [None]
  - BLOOD PRESSURE INCREASED [None]
  - DRUG INTERACTION [None]
